FAERS Safety Report 4882010-3 (Version None)
Quarter: 2006Q1

REPORT INFORMATION
  Report Type: 
  Country: None (occurrence: None)
  Receive Date: 20060117
  Receipt Date: 20060109
  Transmission Date: 20060701
  Serious: Yes (Hospitalization, Other)
  Sender: FDA-Public Use
  Company Number: CZ-AVENTIS-200610321GDDC

PATIENT
  Age: 50 Year
  Sex: Female

DRUGS (3)
  1. ARAVA [Suspect]
     Indication: RHEUMATOID ARTHRITIS
     Route: 048
     Dates: start: 20030901, end: 20050922
  2. MEDROL [Concomitant]
     Route: 048
  3. NSAID'S [Concomitant]
     Dosage: DOSE: ON DEMAND UP TO 200MG
     Route: 048

REACTIONS (2)
  - DYSPNOEA [None]
  - PULMONARY HYPERTENSION [None]
